FAERS Safety Report 4620936-6 (Version None)
Quarter: 2005Q1

REPORT INFORMATION
  Report Type: 
  Country: None (occurrence: None)
  Receive Date: 20050328
  Receipt Date: 20050201
  Transmission Date: 20050727
  Serious: Yes (Hospitalization)
  Sender: FDA-Public Use
  Company Number: IT-ABBOTT-05P-083-0289103-00

PATIENT
  Sex: Male

DRUGS (3)
  1. KLACID [Suspect]
     Indication: INFLUENZA
     Route: 048
     Dates: start: 20050115, end: 20050117
  2. SUPRAX [Concomitant]
     Indication: INFLUENZA
     Route: 048
     Dates: start: 20050118, end: 20050119
  3. PARACETAMOL [Concomitant]
     Indication: INFLUENZA
     Route: 048
     Dates: start: 20050122, end: 20050122

REACTIONS (1)
  - PURPURA [None]
